FAERS Safety Report 20401980 (Version 2)
Quarter: 2022Q1

REPORT INFORMATION
  Report Type: Spontaneous
  Country: US (occurrence: US)
  Receive Date: 20220131
  Receipt Date: 20220201
  Transmission Date: 20220424
  Serious: No
  Sender: FDA-Public Use
  Company Number: US-ABBVIE-21K-163-4086534-00

PATIENT

DRUGS (4)
  1. HUMIRA [Suspect]
     Active Substance: ADALIMUMAB
     Indication: Ankylosing spondylitis
     Route: 058
  2. HUMIRA [Suspect]
     Active Substance: ADALIMUMAB
     Indication: Crohn^s disease
  3. HUMIRA [Suspect]
     Active Substance: ADALIMUMAB
     Indication: Psoriasis
  4. HUMIRA [Suspect]
     Active Substance: ADALIMUMAB
     Indication: Psoriatic arthropathy

REACTIONS (5)
  - Fatigue [Unknown]
  - Feeling abnormal [Unknown]
  - Arthralgia [Unknown]
  - Spinal pain [Unknown]
  - Back pain [Unknown]

NARRATIVE: CASE EVENT DATE: 20210901
